FAERS Safety Report 4917593-8 (Version None)
Quarter: 2006Q1

REPORT INFORMATION
  Report Type: 
  Country: None (occurrence: None)
  Receive Date: 20060221
  Receipt Date: 20051004
  Transmission Date: 20060701
  Serious: Yes (Other)
  Sender: FDA-Public Use
  Company Number: US-MERCK-0510USA03982

PATIENT
  Age: 69 Year
  Sex: Female
  Weight: 90 kg

DRUGS (23)
  1. ULTRACET [Concomitant]
     Route: 065
     Dates: start: 20020218
  2. [THERAPY UNSPECIFIED] [Concomitant]
     Route: 065
     Dates: start: 20030627, end: 20041201
  3. METFORMIN [Concomitant]
     Route: 065
     Dates: start: 20021101
  4. VIOXX [Suspect]
     Indication: OSTEOARTHRITIS
     Route: 048
     Dates: start: 19990608, end: 20040901
  5. VIOXX [Suspect]
     Route: 048
     Dates: start: 19990608, end: 20040901
  6. VIOXX [Suspect]
     Route: 048
     Dates: start: 19990608, end: 20040901
  7. VIOXX [Suspect]
     Route: 048
     Dates: start: 19990608, end: 20040901
  8. VIOXX [Suspect]
     Route: 048
     Dates: start: 19990608, end: 20040901
  9. ASPIRIN [Concomitant]
     Route: 065
     Dates: start: 20030819
  10. MOBIC [Concomitant]
     Route: 065
     Dates: start: 20000919
  11. TYLENOL [Concomitant]
     Route: 065
     Dates: start: 19990512
  12. EXTRA STRENGTH TYLENOL [Concomitant]
     Route: 065
     Dates: start: 19990608
  13. VIOXX [Suspect]
     Route: 048
     Dates: start: 19990608, end: 20040901
  14. VIOXX [Suspect]
     Indication: BACK PAIN
     Route: 048
     Dates: start: 19990608, end: 20040901
  15. VIOXX [Suspect]
     Route: 048
     Dates: start: 19990608, end: 20040901
  16. VIOXX [Suspect]
     Route: 048
     Dates: start: 19990608, end: 20040901
  17. VIOXX [Suspect]
     Route: 048
     Dates: start: 19990608, end: 20040901
  18. VIOXX [Suspect]
     Route: 048
     Dates: start: 19990608, end: 20040901
  19. VIOXX [Suspect]
     Route: 048
     Dates: start: 19990608, end: 20040901
  20. ACCUPRIL [Concomitant]
     Route: 065
     Dates: start: 20030601
  21. GLIPIZIDE [Concomitant]
     Route: 065
     Dates: start: 20031201
  22. GLUCOTROL [Concomitant]
     Route: 065
     Dates: start: 20020301
  23. LIPITOR [Concomitant]
     Route: 065
     Dates: start: 20040201, end: 20040801

REACTIONS (8)
  - BACTERIAL INFECTION [None]
  - CEREBROVASCULAR ACCIDENT [None]
  - DIABETIC NEUROPATHY [None]
  - DIZZINESS [None]
  - INFECTION [None]
  - PRESCRIBED OVERDOSE [None]
  - SENSORY DISTURBANCE [None]
  - TRANSIENT ISCHAEMIC ATTACK [None]
